FAERS Safety Report 13365418 (Version 1)
Quarter: 2017Q1

REPORT INFORMATION
  Report Type: Spontaneous
  Country: US (occurrence: US)
  Receive Date: 20170323
  Receipt Date: 20170323
  Transmission Date: 20170429
  Serious: No
  Sender: FDA-Public Use
  Company Number: US-WARNER CHILCOTT-2016-000492

PATIENT
  Age: 61 Year
  Sex: Female
  Weight: 62.13 kg

DRUGS (4)
  1. ESTRACE [Suspect]
     Active Substance: ESTRADIOL
     Dosage: A TINY DAB EXTERNALLY
     Route: 065
  2. ESTRACE [Suspect]
     Active Substance: ESTRADIOL
     Dosage: 0.1 MG, 2 TIMES PER WEEK
     Route: 067
  3. ADVIL [Concomitant]
     Active Substance: IBUPROFEN
     Dosage: UNK UNK, PRN
     Route: 048
  4. ESTRACE [Suspect]
     Active Substance: ESTRADIOL
     Indication: VAGINAL INFECTION
     Dosage: 0.2 MG, QOD FOR 2 WEEKS
     Route: 067
     Dates: start: 201512

REACTIONS (1)
  - Skin reaction [Not Recovered/Not Resolved]

NARRATIVE: CASE EVENT DATE: 2016
